FAERS Safety Report 4762645-9 (Version None)
Quarter: 2005Q3

REPORT INFORMATION
  Report Type: 
  Country: None (occurrence: None)
  Receive Date: 20050907
  Receipt Date: 20050824
  Transmission Date: 20060218
  Serious: Yes (Death, Hospitalization)
  Sender: FDA-Public Use
  Company Number: 2005AP04536

PATIENT
  Age: 24071 Day
  Sex: Female
  Weight: 32 kg

DRUGS (5)
  1. IRESSA [Suspect]
     Indication: NON-SMALL CELL LUNG CANCER
     Route: 048
     Dates: start: 20050808, end: 20050823
  2. IRESSA [Suspect]
     Indication: LUNG ADENOCARCINOMA STAGE IV
     Route: 048
     Dates: start: 20050808, end: 20050823
  3. MORPHINE [Concomitant]
     Indication: ANALGESIC EFFECT
     Route: 048
     Dates: start: 20050630, end: 20050823
  4. CELEBREX [Concomitant]
     Indication: PAIN
     Route: 048
     Dates: start: 20050801, end: 20050822
  5. DORMICUM [Concomitant]
     Indication: INSOMNIA
     Route: 048
     Dates: start: 20050808

REACTIONS (3)
  - ENTEROCOLITIS [None]
  - INTESTINAL INFARCTION [None]
  - MESENTERIC VASCULAR INSUFFICIENCY [None]
